FAERS Safety Report 4301954-4 (Version None)
Quarter: 2004Q1

REPORT INFORMATION
  Report Type: 
  Country: None (occurrence: None)
  Receive Date: 20040220
  Receipt Date: 20040210
  Transmission Date: 20041129
  Serious: Yes (Life-Threatening)
  Sender: FDA-Public Use
  Company Number: 2004AP00679

PATIENT
  Age: 64 Year
  Sex: Male

DRUGS (2)
  1. DIPRIVAN [Suspect]
     Dates: start: 20040206
  2. XYLOCAINE [Concomitant]

REACTIONS (5)
  - ACCIDENTAL EXPOSURE [None]
  - ANAESTHETIC COMPLICATION [None]
  - IATROGENIC INJURY [None]
  - RESPIRATORY ARREST [None]
  - SEDATION [None]
